FAERS Safety Report 9278006 (Version 2)
Quarter: 2013Q2

REPORT INFORMATION
  Report Type: Spontaneous
  Country: US (occurrence: US)
  Receive Date: 20130508
  Receipt Date: 20130616
  Transmission Date: 20140414
  Serious: Yes (Other)
  Sender: FDA-Public Use
  Company Number: US-PFIZER INC-2013141107

PATIENT
  Age: 64 Year
  Sex: Female
  Weight: 118 kg

DRUGS (6)
  1. CELEBREX [Suspect]
     Indication: ARTHRITIS
     Dosage: 200 MG, 1X/DAY
     Dates: end: 20111207
  2. CELEBREX [Suspect]
     Dosage: 200 MG, 1X/DAY
  3. PRAVASTATIN [Concomitant]
     Indication: BLOOD CHOLESTEROL INCREASED
     Dosage: 40 MG, 1X/DAY
  4. LISINOPRIL [Concomitant]
     Indication: HYPERTENSION
     Dosage: 40 MG, 2X/DAY
  5. BABY ASPIRIN [Concomitant]
     Dosage: 81 MG, 1X/DAY
  6. LEVOTHYROXINE [Concomitant]
     Indication: HYPOTHYROIDISM
     Dosage: 0.1 MG, 1X/DAY

REACTIONS (7)
  - Abasia [Unknown]
  - Osteomyelitis [Unknown]
  - Dislocation of vertebra [Unknown]
  - Intervertebral disc disorder [Unknown]
  - Dysstasia [Unknown]
  - Arthralgia [Unknown]
  - Spondylitis [Unknown]
